FAERS Safety Report 6807656-4 (Version None)
Quarter: 2010Q2

REPORT INFORMATION
  Report Type: 
  Country: None (occurrence: None)
  Receive Date: 20100628
  Receipt Date: 20100628
  Transmission Date: 20101027
  Serious: Yes (Other)
  Sender: FDA-Public Use
  Company Number: None

PATIENT
  Age: 71 Year
  Sex: Female
  Weight: 66.2252 kg

DRUGS (6)
  1. LEVAQUIN [Suspect]
     Indication: COUGH
     Dosage: 500 MG 1 PER DAY ORAL
     Route: 048
     Dates: start: 20100506
  2. LEVAQUIN [Suspect]
     Indication: FEELING COLD
     Dosage: 500 MG 1 PER DAY ORAL
     Route: 048
     Dates: start: 20100506
  3. LEVAQUIN [Suspect]
     Indication: PYREXIA
     Dosage: 500 MG 1 PER DAY ORAL
     Route: 048
     Dates: start: 20100506
  4. LEVAQUIN [Suspect]
     Indication: COUGH
     Dosage: 500 MG 1 PER DAY ORAL
     Route: 048
     Dates: start: 20100507
  5. LEVAQUIN [Suspect]
     Indication: FEELING COLD
     Dosage: 500 MG 1 PER DAY ORAL
     Route: 048
     Dates: start: 20100507
  6. LEVAQUIN [Suspect]
     Indication: PYREXIA
     Dosage: 500 MG 1 PER DAY ORAL
     Route: 048
     Dates: start: 20100507

REACTIONS (4)
  - DIZZINESS [None]
  - EAR PAIN [None]
  - HEART RATE INCREASED [None]
  - TENDONITIS [None]
